FAERS Safety Report 9679158 (Version 1)
Quarter: 2013Q4

REPORT INFORMATION
  Report Type: Spontaneous
  Country: CN (occurrence: None)
  Receive Date: 20131107
  Receipt Date: 20131107
  Transmission Date: 20140711
  Serious: Yes (Life-Threatening, Hospitalization)
  Sender: FDA-Public Use
  Company Number: VAL_02803_2013

PATIENT
  Age: 83 Year
  Sex: Female
  Weight: 51 kg

DRUGS (3)
  1. LOTENSIN [Suspect]
     Indication: PRODUCT USED FOR UNKNOWN INDICATION
     Route: 060
     Dates: start: 20120109, end: 20120109
  2. CAPTOPRIL (CAPTOPRIL) (CAPTOPRIL) [Suspect]
     Indication: PRODUCT USED FOR UNKNOWN INDICATION
     Dosage: DF SUBLINGUAL
  3. ADALAT [Suspect]
     Indication: PRODUCT USED FOR UNKNOWN INDICATION

REACTIONS (7)
  - Chest discomfort [None]
  - Palpitations [None]
  - Dyspnoea [None]
  - Hypotension [None]
  - Atrial fibrillation [None]
  - Sinoatrial block [None]
  - Extrasystoles [None]
